FAERS Safety Report 13753422 (Version 2)
Quarter: 2017Q3

REPORT INFORMATION
  Report Type: Spontaneous
  Country: IT (occurrence: IT)
  Receive Date: 20170713
  Receipt Date: 20170817
  Transmission Date: 20171127
  Serious: Yes (Hospitalization)
  Sender: FDA-Public Use
  Company Number: IT-TEVA-784735ACC

PATIENT
  Age: 60 Year
  Sex: Male
  Weight: 85 kg

DRUGS (13)
  1. ADALAT CRONO - 30 MG COMPRESSE A RILASCIO MODIFICATO - MEDIFARM S.R.L. [Concomitant]
     Indication: PRODUCT USED FOR UNKNOWN INDICATION
     Route: 048
  2. FOLINA - 5 MG CAPSULE - TEOFARMA S.R.L. [Concomitant]
     Indication: PRODUCT USED FOR UNKNOWN INDICATION
     Route: 048
  3. RIBAVIRINA TEVA - TEVA B.V. [Suspect]
     Active Substance: RIBAVIRIN
     Indication: PRODUCT USED FOR UNKNOWN INDICATION
     Dosage: 11.3 MG/KG DAILY;
     Route: 048
     Dates: start: 20170210, end: 20170315
  4. TRINIPLAS - 10 MG SISTEMI TRANSDERMICI - CHIESI FARMACEUTICI S.P.A. [Concomitant]
     Indication: PRODUCT USED FOR UNKNOWN INDICATION
  5. LOPRESOR - 100 MG COMPRESSE RIVESTITE CON FILM [Concomitant]
     Active Substance: METOPROLOL TARTRATE
     Indication: PRODUCT USED FOR UNKNOWN INDICATION
     Route: 048
  6. TORVAST - 40 MG COMPRESSE - PFIZER LIMITED [Concomitant]
     Indication: PRODUCT USED FOR UNKNOWN INDICATION
     Route: 048
  7. ZYLORIC - 300 MG COMPRESSE - TEOFARMA S.R.L. [Concomitant]
     Active Substance: ALLOPURINOL
     Indication: PRODUCT USED FOR UNKNOWN INDICATION
     Route: 048
  8. GLUCOFERRO - 650 MG COMPRESSE EFFERVESCENTI [Concomitant]
     Indication: PRODUCT USED FOR UNKNOWN INDICATION
     Route: 048
  9. LASIX [Concomitant]
     Active Substance: FUROSEMIDE
     Indication: PRODUCT USED FOR UNKNOWN INDICATION
     Route: 048
  10. HARVONI [Suspect]
     Active Substance: LEDIPASVIR\SOFOSBUVIR
     Indication: HEPATITIS C
     Dosage: 90.4 MILLIGRAM DAILY;
     Route: 048
     Dates: start: 20170210
  11. EPREX - 40000 UI SOLUZIONE INIETTABILE - JANSSEN CILAG S.P.A. [Concomitant]
     Indication: PRODUCT USED FOR UNKNOWN INDICATION
  12. DIFIX - 0,25 MCG CAPSULE MOLLI - PROMEDICA S.R.L. [Concomitant]
     Indication: PRODUCT USED FOR UNKNOWN INDICATION
     Route: 048
  13. LANSOX - TAKEDA ITALIA S.P.A. [Concomitant]
     Active Substance: LANSOPRAZOLE
     Indication: PRODUCT USED FOR UNKNOWN INDICATION

REACTIONS (1)
  - Acute kidney injury [Recovered/Resolved]

NARRATIVE: CASE EVENT DATE: 20170315
